FAERS Safety Report 11866468 (Version 1)
Quarter: 2015Q4

REPORT INFORMATION
  Report Type: Spontaneous
  Country: GB (occurrence: GB)
  Receive Date: 20151224
  Receipt Date: 20151224
  Transmission Date: 20160305
  Serious: Yes (Life-Threatening, Hospitalization, Disabling, Other)
  Sender: FDA-Public Use
  Company Number: GB-DEXPHARM-20153140

PATIENT
  Age: 84 Year
  Sex: Male
  Weight: 80.73 kg

DRUGS (1)
  1. OMEPRAZOLE. [Suspect]
     Active Substance: OMEPRAZOLE
     Indication: INTERNAL HAEMORRHAGE
     Route: 048
     Dates: start: 201205, end: 201301

REACTIONS (1)
  - Abdominal hernia [Recovering/Resolving]

NARRATIVE: CASE EVENT DATE: 20130310
